FAERS Safety Report 5072732-6 (Version None)
Quarter: 2006Q3

REPORT INFORMATION
  Report Type: 
  Country: None (occurrence: None)
  Receive Date: 20060807
  Receipt Date: 20060721
  Transmission Date: 20061208
  Serious: Yes (Hospitalization, Other)
  Sender: FDA-Public Use
  Company Number: US-JNJFOC-20060705155

PATIENT
  Sex: Female
  Weight: 133.36 kg

DRUGS (5)
  1. DURAGESIC-100 [Suspect]
     Dosage: TWO-75 UG PATCHES
     Route: 062
  2. DURAGESIC-100 [Suspect]
     Indication: PAIN
     Route: 062
  3. CYMBALTA [Concomitant]
     Indication: DEPRESSION
     Route: 048
  4. NORCO [Concomitant]
     Indication: PAIN
     Route: 048
  5. OMEPRAZOLE [Concomitant]
     Indication: GASTROINTESTINAL DISORDER
     Route: 048

REACTIONS (6)
  - MUSCULAR WEAKNESS [None]
  - OVARIAN CANCER [None]
  - RENAL FAILURE [None]
  - SEPSIS [None]
  - UPPER LIMB FRACTURE [None]
  - WEIGHT DECREASED [None]
